FAERS Safety Report 6661201-5 (Version None)
Quarter: 2010Q1

REPORT INFORMATION
  Report Type: 
  Country: None (occurrence: None)
  Receive Date: 20100331
  Receipt Date: 20100324
  Transmission Date: 20100710
  Serious: Yes (Other)
  Sender: FDA-Public Use
  Company Number: D0067015A

PATIENT
  Sex: Male

DRUGS (2)
  1. CEFUHEXAL [Suspect]
     Indication: BILIARY COLIC
     Dosage: 500MG PER DAY
     Route: 048
  2. METAMIZOL [Suspect]
     Indication: BILIARY COLIC
     Dosage: 500MG PER DAY
     Route: 048

REACTIONS (5)
  - ASTHMA [None]
  - DYSPNOEA [None]
  - HENOCH-SCHONLEIN PURPURA [None]
  - OEDEMA PERIPHERAL [None]
  - PRURITUS [None]
